FAERS Safety Report 19859330 (Version 1)
Quarter: 2021Q3

REPORT INFORMATION
  Report Type: Spontaneous
  Country: US (occurrence: US)
  Receive Date: 20210920
  Receipt Date: 20210920
  Transmission Date: 20211014
  Serious: No
  Sender: FDA-Public Use
  Company Number: None

PATIENT
  Sex: Female
  Weight: 58.95 kg

DRUGS (16)
  1. MYALEPT [Suspect]
     Active Substance: METRELEPTIN
     Indication: LIPODYSTROPHY ACQUIRED
     Route: 058
  2. ASPIRIN. [Concomitant]
     Active Substance: ASPIRIN
  3. CHOLECALCIFEROL [Concomitant]
     Active Substance: CHOLECALCIFEROL
  4. HYDROCODONE?APAP [Concomitant]
     Active Substance: ACETAMINOPHEN\HYDROCODONE
  5. FREESTYLE DIABETIC TESTING SUPPLIES [Concomitant]
  6. HUMULIN R [Concomitant]
     Active Substance: INSULIN HUMAN
  7. IBUPROFEN. [Concomitant]
     Active Substance: IBUPROFEN
  8. VASCEPA [Concomitant]
     Active Substance: ICOSAPENT ETHYL
  9. GLUCAGON. [Concomitant]
     Active Substance: GLUCAGON
  10. PRAVASTATIN. [Concomitant]
     Active Substance: PRAVASTATIN
  11. SERTRALINE [Concomitant]
     Active Substance: SERTRALINE HYDROCHLORIDE
  12. TEMAZEPAM. [Concomitant]
     Active Substance: TEMAZEPAM
  13. VITAMIN E [Concomitant]
     Active Substance: .ALPHA.-TOCOPHEROL
  14. BACTERIOSTATIC WATER [Concomitant]
     Active Substance: WATER
  15. FENOFIBRATE. [Concomitant]
     Active Substance: FENOFIBRATE
  16. LOSARTAN. [Concomitant]
     Active Substance: LOSARTAN

REACTIONS (2)
  - Malaise [None]
  - Intentional dose omission [None]
